FAERS Safety Report 19817247 (Version 1)
Quarter: 2021Q3

REPORT INFORMATION
  Report Type: Spontaneous
  Country: US (occurrence: US)
  Receive Date: 20210911
  Receipt Date: 20210911
  Transmission Date: 20211014
  Serious: Yes (Other)
  Sender: FDA-Public Use
  Company Number: US-SA-2021SA296968

PATIENT
  Age: 75 Year
  Sex: Female

DRUGS (2)
  1. ZANTAC [Suspect]
     Active Substance: RANITIDINE HYDROCHLORIDE
     Indication: ABDOMINAL DISCOMFORT
  2. ZANTAC [Suspect]
     Active Substance: RANITIDINE HYDROCHLORIDE
     Indication: DYSPEPSIA
     Dosage: UNK, QD
     Dates: start: 198801, end: 201703

REACTIONS (1)
  - Lung carcinoma cell type unspecified stage IV [Unknown]

NARRATIVE: CASE EVENT DATE: 20160101
